FAERS Safety Report 6761802-X (Version None)
Quarter: 2010Q2

REPORT INFORMATION
  Report Type: 
  Country: None (occurrence: None)
  Receive Date: 20100607
  Receipt Date: 20100602
  Transmission Date: 20101027
  Serious: Yes (Other)
  Sender: FDA-Public Use
  Company Number: 2010SP025497

PATIENT
  Sex: Female

DRUGS (2)
  1. CLARITIN-D [Suspect]
     Indication: SINUS CONGESTION
     Dosage: 5 MG;QD;PO
     Route: 048
     Dates: start: 20100501, end: 20100502
  2. CLARITIN-D [Suspect]
     Indication: THROAT IRRITATION
     Dosage: 5 MG;QD;PO
     Route: 048
     Dates: start: 20100501, end: 20100502

REACTIONS (8)
  - CHEST PAIN [None]
  - CHILLS [None]
  - DIZZINESS [None]
  - FEAR [None]
  - FEELING ABNORMAL [None]
  - FEELING HOT [None]
  - HEART RATE INCREASED [None]
  - INSOMNIA [None]
